FAERS Safety Report 8107047-2 (Version None)
Quarter: 2012Q1

REPORT INFORMATION
  Report Type: 
  Country: None (occurrence: None)
  Receive Date: 20120202
  Receipt Date: 20120127
  Transmission Date: 20120608
  Serious: Yes (Death, Other)
  Sender: FDA-Public Use
  Company Number: US-BAYER-201038887NA

PATIENT
  Age: 65 Year
  Sex: Female
  Weight: 55.329 kg

DRUGS (34)
  1. ACETYLSALICYLIC ACID SRT [Concomitant]
     Dosage: 81 MG, QD
  2. LANOXIN [Concomitant]
     Dosage: 0.25 MG, QD
  3. HEPARIN [Concomitant]
     Dosage: UNK
     Dates: start: 20040430, end: 20040430
  4. FENTANYL CITRATE [Concomitant]
     Dosage: UNK
     Dates: start: 20040430, end: 20040430
  5. DECADRON [Concomitant]
     Dosage: UNK
     Dates: start: 20040430, end: 20040430
  6. TRASYLOL [Suspect]
     Indication: AORTIC VALVE REPLACEMENT
  7. LASIX [Concomitant]
     Indication: RENAL FAILURE ACUTE
     Dosage: 40 MG, QD
     Dates: start: 20040501, end: 20040901
  8. LEVOXYL [Concomitant]
     Dosage: 0.112 MG, QD
  9. MORPHINE [Concomitant]
     Dosage: 6MG PREMEDICATION
  10. PROTAMINE SULFATE [Concomitant]
     Dosage: UNK
     Dates: start: 20040430, end: 20040430
  11. RED BLOOD CELLS [Concomitant]
  12. METHYLPREDNISOLONE [Concomitant]
     Dosage: 2 HOURS PRIOR TO CT ANGIOGRAM
  13. DOPAMINE HCL [Concomitant]
     Indication: RENAL FAILURE ACUTE
     Dosage: UNK
     Dates: start: 20040601, end: 20040701
  14. LEXAPRO [Concomitant]
  15. DOBUTAMINE HCL [Concomitant]
     Dosage: UNK
     Dates: start: 20040430, end: 20040430
  16. PLATELETS [Concomitant]
     Dosage: 2 UNITS
     Dates: start: 20040430
  17. TRASYLOL [Suspect]
     Indication: STERNOTOMY
     Dosage: TEST DOSE: PUMP PRIME (2 MILLION UNITS)
     Dates: start: 20040430, end: 20040430
  18. AMIODARONE HCL [Concomitant]
     Dosage: 400 MG, TID
     Route: 048
     Dates: start: 20110428
  19. BUMEX [Concomitant]
     Indication: RENAL FAILURE ACUTE
     Dosage: UNK
     Dates: start: 20040501, end: 20040901
  20. MIDAZOLAM [Concomitant]
     Dosage: UNK
     Dates: start: 20040430, end: 20040430
  21. INSULIN [Concomitant]
     Dosage: UNK
     Dates: start: 20040430, end: 20040430
  22. PLASMA [Concomitant]
     Dosage: 4 UNITS
     Dates: start: 20040430
  23. TRASYLOL [Suspect]
     Indication: MITRAL VALVE REPLACEMENT
     Dosage: LOADING DOSE: APROTININ 6 MILLION (FULL DOSE) PER ANESTHESIA
  24. LASIX [Concomitant]
     Dosage: 40MG
     Dates: start: 20040430, end: 20040430
  25. LEVOPHED [Concomitant]
     Dosage: UNK
     Dates: start: 20040430, end: 20040430
  26. VANCOMYCIN [Concomitant]
  27. NITROGLYCERIN [Concomitant]
     Indication: CHEST PAIN
     Dosage: 0.4 MG, PRN
     Route: 060
  28. METHYLPREDNISOLONE [Concomitant]
     Indication: ANGIOGRAM
     Dosage: 32 MG, 12 HOURS
     Route: 048
     Dates: start: 20110428
  29. IMIPENEM [Concomitant]
  30. EPINEPHRINE [Concomitant]
     Dosage: UNK
     Dates: start: 20040430, end: 20040430
  31. ALDACTONE [Concomitant]
     Indication: RENAL FAILURE ACUTE
     Dosage: UNK
     Dates: start: 20040501, end: 20040901
  32. ZAROXOLYN [Concomitant]
     Indication: RENAL FAILURE ACUTE
     Dosage: UNK
     Dates: start: 20040501, end: 20040901
  33. GENTAMICIN [Concomitant]
     Dosage: UNK
     Dates: start: 20040430, end: 20040510
  34. CRYOPRECIPITATES [Concomitant]
     Dosage: 10 UNITS
     Dates: start: 20040430

REACTIONS (14)
  - DEATH [None]
  - ANHEDONIA [None]
  - INJURY [None]
  - RENAL FAILURE [None]
  - MULTI-ORGAN FAILURE [None]
  - ANXIETY [None]
  - UNEVALUABLE EVENT [None]
  - NERVOUSNESS [None]
  - DISABILITY [None]
  - PAIN [None]
  - DEPRESSION [None]
  - EMOTIONAL DISTRESS [None]
  - RENAL INJURY [None]
  - FEAR OF DEATH [None]
